FAERS Safety Report 9298513 (Version 2)
Quarter: 2014Q2

REPORT INFORMATION
  Report Type: Spontaneous
  Country: US (occurrence: None)
  Receive Date: 20130515
  Receipt Date: 20140415
  Transmission Date: 20141212
  Serious: Yes (Death)
  Sender: FDA-Public Use
  Company Number: 2013-168

PATIENT
  Age: 66 Year
  Sex: Male

DRUGS (12)
  1. FAZACLO ODT [Suspect]
     Dates: start: 20080327, end: 20130430
  2. FLAGYL (METRONIDAZOLE) [Concomitant]
  3. VITAMIN E (TOCOPHEROL) [Concomitant]
  4. VITAMIN D (ERGOCALCIFEROL) [Concomitant]
  5. LANTUS (INSULIN GLARGINE) [Concomitant]
  6. CLONAZEPAM (CLONAZEPAM) (CLONAZEPAM) [Concomitant]
  7. TRILEPTAL (OXCARBAZEPINE) [Concomitant]
  8. SIMVASTATIN (SIMVASTATIN) [Concomitant]
  9. ZANTAC (RANITIDINE HYDROCHLORIDE) [Concomitant]
  10. MULTIVITAMIN (VITAMINS NOS) [Concomitant]
  11. FLUDROCORTISONE (FLUDROCORTISONE ACETATE) [Concomitant]
  12. DONEPEZIL (DONEPEZIL HYDROCHLORIDE) [Concomitant]

REACTIONS (1)
  - Death [None]
